FAERS Safety Report 9947063 (Version 1)
Quarter: 2014Q1

REPORT INFORMATION
  Report Type: Report from Study
  Country: US (occurrence: US)
  Receive Date: 20140303
  Receipt Date: 20140303
  Transmission Date: 20141002
  Serious: No
  Sender: FDA-Public Use
  Company Number: US-ABBVIE-13P-163-1062026-00

PATIENT
  Age: 53 Year
  Sex: Female

DRUGS (14)
  1. HUMIRA [Suspect]
     Indication: COLITIS ULCERATIVE
     Dates: start: 20130215
  2. HUMIRA [Suspect]
     Dates: start: 20130301
  3. HUMIRA [Suspect]
  4. PREDNISONE [Concomitant]
     Indication: COLITIS ULCERATIVE
  5. PREDNISONE [Concomitant]
  6. PREDNISONE [Concomitant]
  7. PREDNISONE [Concomitant]
  8. NORCO [Concomitant]
     Indication: GASTROINTESTINAL PAIN
  9. LIALDA [Concomitant]
     Indication: COLITIS ULCERATIVE
  10. PROTONIX [Concomitant]
     Indication: STEROID THERAPY
  11. AMBIEN [Concomitant]
     Indication: PRODUCT USED FOR UNKNOWN INDICATION
     Dosage: QHS
  12. MULTIVITAMINS W/MINERALS [Concomitant]
     Indication: SUPPLEMENTATION THERAPY
  13. CALCIUM [Concomitant]
     Indication: SUPPLEMENTATION THERAPY
  14. PROBOTIC [Concomitant]
     Indication: SUPPLEMENTATION THERAPY
     Dosage: DAILY

REACTIONS (4)
  - Asthenia [Unknown]
  - Arthralgia [Recovered/Resolved]
  - Feeling hot [Unknown]
  - Hyperhidrosis [Unknown]
